FAERS Safety Report 9669864 (Version 1)
Quarter: 2013Q4

REPORT INFORMATION
  Report Type: Spontaneous
  Country: US (occurrence: US)
  Receive Date: 20131105
  Receipt Date: 20131105
  Transmission Date: 20140711
  Serious: Yes (Death, Other)
  Sender: FDA-Public Use
  Company Number: US-PFIZER INC-2013313588

PATIENT
  Sex: Male

DRUGS (2)
  1. CHANTIX [Suspect]
     Indication: NICOTINE DEPENDENCE
     Dosage: UNK
     Dates: start: 20100302, end: 20101018
  2. CHANTIX [Suspect]
     Indication: TOBACCO USER

REACTIONS (3)
  - Completed suicide [Fatal]
  - Psychotic disorder [Fatal]
  - Aggression [Unknown]
